FAERS Safety Report 7525806-1 (Version None)
Quarter: 2011Q2

REPORT INFORMATION
  Report Type: 
  Country: None (occurrence: None)
  Receive Date: 20110606
  Receipt Date: 20110406
  Transmission Date: 20111010
  Serious: No
  Sender: FDA-Public Use
  Company Number: A0921654A

PATIENT
  Age: 32 Year
  Sex: Female

DRUGS (4)
  1. LEXAPRO [Concomitant]
  2. LAMOTRIGINE [Suspect]
     Indication: BIPOLAR II DISORDER
     Route: 048
     Dates: start: 20110301
  3. LAMICTAL [Suspect]
     Indication: BIPOLAR II DISORDER
     Route: 048
     Dates: start: 20110301
  4. ATIVAN [Concomitant]

REACTIONS (1)
  - RASH [None]
